FAERS Safety Report 6638648-6 (Version None)
Quarter: 2010Q1

REPORT INFORMATION
  Report Type: 
  Country: None (occurrence: None)
  Receive Date: 20100301
  Receipt Date: 20090622
  Transmission Date: 20100710
  Serious: Yes (Hospitalization)
  Sender: FDA-Public Use
  Company Number: RB-17280-2009

PATIENT
  Age: 46 Year
  Sex: Female

DRUGS (9)
  1. SUBOXONE [Suspect]
     Indication: DRUG DEPENDENCE
     Dosage: 8 MG TID SUBLINGUAL, 24 MG QD SUBLINGUAL
     Route: 060
     Dates: start: 20080918, end: 20090618
  2. SUBOXONE [Suspect]
     Indication: DRUG DEPENDENCE
     Dosage: 8 MG TID SUBLINGUAL, 24 MG QD SUBLINGUAL
     Route: 060
     Dates: start: 20090601
  3. ZOLOFT [Suspect]
     Indication: DEPRESSION
     Dosage: 100 MG, 100 MG
     Dates: start: 20090601, end: 20090601
  4. ZOLOFT [Suspect]
     Indication: DEPRESSION
     Dosage: 100 MG, 100 MG
     Dates: end: 20090618
  5. TRAZODONE [Suspect]
     Indication: SLEEP DISORDER
     Dosage: 150 MG, 150 MG
     Dates: start: 20090601, end: 20090601
  6. TRAZODONE [Suspect]
     Indication: SLEEP DISORDER
     Dosage: 150 MG, 150 MG
     Dates: end: 20090618
  7. TYLENOL-500 [Suspect]
     Indication: PYREXIA
  8. NYQUIL [Suspect]
     Indication: PYREXIA
  9. VICKS DAYQUIL SINUS PRESSURE + PAIN RELIEF W/ IBUPROFEN [Suspect]
     Indication: PYREXIA

REACTIONS (5)
  - DEHYDRATION [None]
  - HEPATIC ENZYME INCREASED [None]
  - JAUNDICE [None]
  - PYREXIA [None]
  - VOMITING [None]
